FAERS Safety Report 7686777-0 (Version None)
Quarter: 2011Q3

REPORT INFORMATION
  Report Type: 
  Country: None (occurrence: None)
  Receive Date: 20110816
  Receipt Date: 20110809
  Transmission Date: 20111222
  Serious: Yes (Hospitalization)
  Sender: FDA-Public Use
  Company Number: JP-EISAI INC-E2090-01685-SPO-JP

PATIENT
  Sex: Male

DRUGS (15)
  1. LANSOPRAZOLE [Suspect]
     Dosage: UNKNOWN
     Dates: end: 20110701
  2. PHENYTOIN SODIUM CAP [Suspect]
     Dosage: UNKNOWN
     Route: 048
     Dates: start: 20110613, end: 20110629
  3. LASIX [Concomitant]
  4. LOPRESSOR [Concomitant]
  5. BISOLVON [Concomitant]
  6. MAGNESIUM SULFATE [Concomitant]
  7. SIGMART [Concomitant]
  8. THEOLONG [Concomitant]
  9. ASPIRIN [Concomitant]
  10. ARGAMATE [Concomitant]
     Route: 048
  11. ZONISAMIDE [Suspect]
     Indication: EPILEPSY
     Dosage: 200 MG DAILY
     Route: 048
     Dates: start: 20110630, end: 20110707
  12. KREMEZIN [Concomitant]
  13. PLAVIX [Suspect]
     Dosage: UNKNOWN
     Route: 048
     Dates: end: 20110701
  14. CONIEL [Concomitant]
  15. ISOSORBIDE DINITRATE [Concomitant]

REACTIONS (1)
  - AGRANULOCYTOSIS [None]
